FAERS Safety Report 4581738-2 (Version None)
Quarter: 2005Q1

REPORT INFORMATION
  Report Type: 
  Country: None (occurrence: None)
  Receive Date: 20050127
  Receipt Date: 20040910
  Transmission Date: 20050727
  Serious: No
  Sender: FDA-Public Use
  Company Number: USA040977884

PATIENT
  Age: 12 Year
  Sex: Male
  Weight: 27 kg

DRUGS (1)
  1. STRATTERA [Suspect]
     Indication: ATTENTION DEFICIT/HYPERACTIVITY DISORDER
     Dosage: 40 MG/1 IN THE MORNING
     Dates: start: 20040819, end: 20040905

REACTIONS (5)
  - ABDOMINAL PAIN UPPER [None]
  - BLEPHAROSPASM [None]
  - FATIGUE [None]
  - NAUSEA [None]
  - VOMITING [None]
